FAERS Safety Report 9387741 (Version 1)
Quarter: 2013Q3

REPORT INFORMATION
  Report Type: Spontaneous
  Country: TW (occurrence: TW)
  Receive Date: 20130708
  Receipt Date: 20130708
  Transmission Date: 20140515
  Serious: Yes (Hospitalization)
  Sender: FDA-Public Use
  Company Number: TW-ROXANE LABORATORIES, INC.-2013-RO-01096RO

PATIENT
  Age: 65 Year
  Sex: Male

DRUGS (4)
  1. RISPERIDONE [Suspect]
     Indication: BIPOLAR DISORDER
     Dosage: 3 MG
     Dates: start: 200601, end: 200806
  2. RISPERIDONE [Suspect]
     Indication: ALCOHOL USE
  3. OXCARBAZEPINE [Suspect]
     Indication: BIPOLAR DISORDER
     Dosage: 600 MG
     Dates: start: 200601
  4. OXCARBAZEPINE [Suspect]
     Indication: ALCOHOL USE

REACTIONS (2)
  - Diaphragmatic disorder [Recovered/Resolved]
  - Tardive dyskinesia [Recovered/Resolved]
